FAERS Safety Report 6860863-7 (Version None)
Quarter: 2010Q3

REPORT INFORMATION
  Report Type: 
  Country: None (occurrence: None)
  Receive Date: 20100719
  Receipt Date: 20100719
  Transmission Date: 20110219
  Serious: Yes (Other)
  Sender: FDA-Public Use
  Company Number: None

PATIENT
  Age: 40 Year
  Sex: Male
  Weight: 86.1834 kg

DRUGS (1)
  1. AVELOX [Suspect]
     Indication: LABYRINTHITIS
     Dosage: 400 MG 8 PO
     Route: 048
     Dates: start: 20100425, end: 20100501

REACTIONS (18)
  - ANXIETY [None]
  - ARTHRALGIA [None]
  - BURNING SENSATION [None]
  - CHEST DISCOMFORT [None]
  - DRY MOUTH [None]
  - FEELING ABNORMAL [None]
  - FEELING OF BODY TEMPERATURE CHANGE [None]
  - HYPERTENSION [None]
  - HYPOAESTHESIA [None]
  - INSOMNIA [None]
  - JOINT CREPITATION [None]
  - JOINT STIFFNESS [None]
  - MUSCLE TIGHTNESS [None]
  - NERVOUSNESS [None]
  - PALPITATIONS [None]
  - PARAESTHESIA [None]
  - POLLAKIURIA [None]
  - TENDON PAIN [None]
